FAERS Safety Report 8051970-4 (Version None)
Quarter: 2012Q1

REPORT INFORMATION
  Report Type: 
  Country: None (occurrence: None)
  Receive Date: 20120118
  Receipt Date: 20120112
  Transmission Date: 20120608
  Serious: Yes (Hospitalization, Other)
  Sender: FDA-Public Use
  Company Number: US-JNJFOC-20111201721

PATIENT
  Sex: Female
  Weight: 56.7 kg

DRUGS (10)
  1. RISPERDAL [Suspect]
     Route: 048
     Dates: start: 20110509, end: 20110516
  2. RISPERDAL [Suspect]
     Route: 048
     Dates: start: 20111103, end: 20111110
  3. RISPERDAL [Suspect]
     Route: 048
     Dates: start: 20110518, end: 20111103
  4. RISPERDAL [Suspect]
     Route: 048
     Dates: start: 20110101, end: 20110101
  5. RISPERDAL [Suspect]
     Route: 048
     Dates: start: 20110516, end: 20110518
  6. RISPERDAL [Suspect]
     Route: 048
     Dates: start: 20111103, end: 20111110
  7. RISPERDAL [Suspect]
     Indication: HALLUCINATION
     Route: 048
     Dates: start: 20110516, end: 20110518
  8. RISPERDAL [Suspect]
     Route: 048
     Dates: start: 20110518, end: 20111103
  9. RISPERDAL [Suspect]
     Indication: DEMENTIA
     Route: 048
     Dates: start: 20110509, end: 20110516
  10. RISPERDAL [Suspect]
     Route: 048
     Dates: start: 20110101, end: 20110101

REACTIONS (5)
  - DRUG INEFFECTIVE [None]
  - DEMENTIA [None]
  - WEIGHT DECREASED [None]
  - TARDIVE DYSKINESIA [None]
  - COLITIS [None]
